FAERS Safety Report 7243253-7 (Version None)
Quarter: 2011Q1

REPORT INFORMATION
  Report Type: 
  Country: None (occurrence: None)
  Receive Date: 20110125
  Receipt Date: 20110117
  Transmission Date: 20110831
  Serious: Yes (Death, Other)
  Sender: FDA-Public Use
  Company Number: JP-ROCHE-750515

PATIENT
  Age: 75 Year
  Sex: Male

DRUGS (11)
  1. AVASTIN [Suspect]
     Indication: COLON CANCER METASTATIC
     Route: 041
     Dates: start: 20080307
  2. 5-FU [Concomitant]
     Dosage: DOSE FORM: INTRAVENOUS BOLUS
     Route: 042
     Dates: start: 20090528
  3. 5-FU [Concomitant]
     Dosage: DOSE FORM: INTRAVENOUS DRIP
     Route: 042
     Dates: start: 20080307
  4. 5-FU [Concomitant]
     Route: 042
     Dates: start: 20071222, end: 20090909
  5. AVASTIN [Suspect]
     Route: 041
     Dates: start: 20090626
  6. 5-FU [Concomitant]
     Dosage: DOSE FORM: INTRAVENOUS BOLUS
     Route: 042
     Dates: start: 20080307
  7. IRINOTECAN HYDROCHLORIDE [Concomitant]
     Route: 041
     Dates: start: 20090528
  8. LEVOFOLINATE [Concomitant]
     Route: 041
     Dates: start: 20080307
  9. LEVOFOLINATE [Concomitant]
     Route: 041
     Dates: start: 20090528
  10. 5-FU [Concomitant]
     Dosage: DOSE FORM: INTRAVENOUS DRIP
     Route: 042
     Dates: start: 20090528
  11. ELPLAT [Suspect]
     Indication: COLON CANCER METASTATIC
     Route: 041
     Dates: start: 20080307

REACTIONS (3)
  - HYPOAESTHESIA [None]
  - HEPATIC ARTERY OCCLUSION [None]
  - RESPIRATORY FAILURE [None]
